FAERS Safety Report 8447886-1 (Version None)
Quarter: 2012Q2

REPORT INFORMATION
  Report Type: 
  Country: None (occurrence: None)
  Receive Date: 20120612
  Receipt Date: 20120601
  Transmission Date: 20120825
  Serious: Yes (Death)
  Sender: FDA-Public Use
  Company Number: UTC-019520

PATIENT
  Age: 77 Year
  Sex: Female
  Weight: 49.09 kg

DRUGS (3)
  1. DIURETICS (DIURETICS) [Concomitant]
  2. REMODULIN [Suspect]
     Indication: PULMONARY HYPERTENSION
     Dosage: 210.24 UG/KG (0.146 UG/KG, 1 IN 1 MIN), INTRAVENOUS
     Route: 042
     Dates: start: 20090814
  3. REVATIO [Concomitant]

REACTIONS (1)
  - DEATH [None]
